FAERS Safety Report 8848333 (Version 3)
Quarter: 2012Q4

REPORT INFORMATION
  Report Type: 
  Country: US (occurrence: US)
  Receive Date: 20121019
  Receipt Date: 20121106
  Transmission Date: 20130627
  Serious: Yes (Other)
  Sender: FDA-Public Use
  Company Number: US-AMGEN-USASP2012065666

PATIENT
  Age: 52 Year
  Sex: Female
  Weight: 65.76 kg

DRUGS (2)
  1. PROLIA [Suspect]
     Indication: OSTEOPENIA
     Dosage: 60 mg/ml, q6mo
     Route: 058
     Dates: start: 20120222
  2. PROLIA [Suspect]
     Dosage: 60 mg/ml, q6mo
     Route: 058
     Dates: start: 20120829

REACTIONS (2)
  - Osteonecrosis [Unknown]
  - Plantar fasciitis [Unknown]
